FAERS Safety Report 10915380 (Version 3)
Quarter: 2015Q2

REPORT INFORMATION
  Report Type: Spontaneous
  Country: US (occurrence: US)
  Receive Date: 20150316
  Receipt Date: 20150527
  Transmission Date: 20150821
  Serious: Yes (Other)
  Sender: FDA-Public Use
  Company Number: US-PFIZER INC-2009152428

PATIENT
  Age: 68 Year
  Sex: Female
  Weight: 64 kg

DRUGS (5)
  1. LYRICA [Suspect]
     Active Substance: PREGABALIN
     Indication: FIBROMYALGIA
     Dosage: 50 MG, 2X/DAY
     Route: 048
     Dates: start: 2006
  2. LYRICA [Suspect]
     Active Substance: PREGABALIN
     Indication: NEUROPATHY PERIPHERAL
     Dosage: 75 MG, 2X/DAY
  3. ERY-TAB [Concomitant]
     Active Substance: ERYTHROMYCIN
     Dosage: 250 MG, UNK
  4. BABY ASPIRIN [Concomitant]
     Active Substance: ASPIRIN
     Dosage: 81 MG, UNK
  5. LYRICA [Suspect]
     Active Substance: PREGABALIN
     Dosage: UNK, 3X/DAY

REACTIONS (12)
  - Renal disorder [Unknown]
  - Amnesia [Unknown]
  - Cerebrovascular accident [Unknown]
  - Hypoxia [Unknown]
  - Anaemia [Unknown]
  - Neuropathy peripheral [Unknown]
  - Speech disorder [Unknown]
  - Sedation [Unknown]
  - Cardiomyopathy [Unknown]
  - Renal disorder [Unknown]
  - Myocardial infarction [Unknown]
  - Somnolence [Unknown]

NARRATIVE: CASE EVENT DATE: 20090909
